FAERS Safety Report 6900215-4 (Version None)
Quarter: 2010Q3

REPORT INFORMATION
  Report Type: 
  Country: None (occurrence: None)
  Receive Date: 20100803
  Receipt Date: 20100721
  Transmission Date: 20110219
  Serious: Yes (Life-Threatening, Hospitalization)
  Sender: FDA-Public Use
  Company Number: US-ROCHE-701807

PATIENT
  Sex: Male
  Weight: 81.6 kg

DRUGS (8)
  1. PEGINTERFERON ALFA-2A [Suspect]
     Dosage: LAST DOSE PRIOR TO SAE: 05 APRIL 2010
     Route: 058
     Dates: start: 20090512, end: 20100405
  2. RO 5024048 (POLYMERASE INHIBITOR) [Suspect]
     Dosage: LAST DOSE PRIOR TO SAE: 02 AUGUST 2009, DOSAGE FORM: PO, UNITS: TABS
     Route: 048
     Dates: start: 20090512, end: 20090802
  3. RIBAVIRIN [Suspect]
     Dosage: LAST DOSE PRIOR TO SAE: 08 APRIL 2010, DOSAGE FORM: PO
     Route: 048
     Dates: start: 20090512, end: 20100408
  4. TYLENOL [Concomitant]
     Dates: start: 20090512
  5. AMBIEN [Concomitant]
     Dates: start: 20090819
  6. BENEFIBER [Concomitant]
     Dates: start: 20090914
  7. BENADRYL [Concomitant]
     Dosage: DRUG NAME: BENADRYL CREAM
     Dates: start: 20090601
  8. EAR DROPS [Concomitant]
     Dates: start: 20100210

REACTIONS (2)
  - DEEP VEIN THROMBOSIS [None]
  - PULMONARY EMBOLISM [None]
